FAERS Safety Report 20956486 (Version 2)
Quarter: 2022Q3

REPORT INFORMATION
  Report Type: Spontaneous
  Country: US (occurrence: US)
  Receive Date: 20220614
  Receipt Date: 20220816
  Transmission Date: 20221026
  Serious: No
  Sender: FDA-Public Use
  Company Number: US-BIOGEN-2022BI01131004

PATIENT
  Sex: Female

DRUGS (1)
  1. TYSABRI [Suspect]
     Active Substance: NATALIZUMAB
     Indication: Multiple sclerosis
     Route: 050
     Dates: start: 20210226

REACTIONS (6)
  - Multiple sclerosis [Unknown]
  - Photopsia [Unknown]
  - Hypoaesthesia [Unknown]
  - Neuralgia [Unknown]
  - Myalgia [Unknown]
  - Urinary tract infection [Unknown]
